FAERS Safety Report 8186418-2 (Version None)
Quarter: 2012Q1

REPORT INFORMATION
  Report Type: 
  Country: None (occurrence: None)
  Receive Date: 20120305
  Receipt Date: 20120305
  Transmission Date: 20120608
  Serious: No
  Sender: FDA-Public Use
  Company Number: None

PATIENT
  Age: 30 Year
  Sex: Female

DRUGS (1)
  1. PROMETHAZINE [Suspect]
     Dates: start: 20010901, end: 20070326

REACTIONS (8)
  - LIVER INJURY [None]
  - FATIGUE [None]
  - HEPATIC ENZYME INCREASED [None]
  - JAUNDICE [None]
  - PYREXIA [None]
  - NAUSEA [None]
  - MENTAL STATUS CHANGES [None]
  - AGITATION [None]
